FAERS Safety Report 5250789-7 (Version None)
Quarter: 2007Q1

REPORT INFORMATION
  Report Type: 
  Country: None (occurrence: None)
  Receive Date: 20070228
  Receipt Date: 20061128
  Transmission Date: 20070707
  Serious: No
  Sender: FDA-Public Use
  Company Number: US-GLAXOSMITHKLINE-A0611167A

PATIENT
  Age: 55 Year
  Sex: Female
  Weight: 62.3 kg

DRUGS (2)
  1. LAMICTAL [Suspect]
     Indication: ANTIDEPRESSANT THERAPY
     Dosage: 100MG PER DAY
     Route: 048
     Dates: start: 20060524, end: 20060915
  2. ALLEGRA [Concomitant]

REACTIONS (4)
  - ABNORMAL DREAMS [None]
  - FEAR [None]
  - HYPERREFLEXIA [None]
  - HYPERVIGILANCE [None]
